FAERS Safety Report 20511302 (Version 2)
Quarter: 2022Q1

REPORT INFORMATION
  Report Type: Spontaneous
  Country: US (occurrence: US)
  Receive Date: 20220224
  Receipt Date: 20220307
  Transmission Date: 20220424
  Serious: Yes (Hospitalization, Other)
  Sender: FDA-Public Use
  Company Number: US-MLMSERVICE-20220209-3367257-1

PATIENT
  Age: 71 Year
  Sex: Male

DRUGS (2)
  1. EPINEPHRINE\LIDOCAINE HYDROCHLORIDE [Suspect]
     Active Substance: EPINEPHRINE\LIDOCAINE HYDROCHLORIDE
     Indication: Local anaesthesia
     Dosage: 15 ML, SINGLE (10 CC OF LOCAL INJECTED IN PALM, 2 CC PER PROX + MIDDLE PHALANX, 1 CC IN DISTAL)
  2. COUMADIN [Concomitant]
     Active Substance: WARFARIN SODIUM
     Dosage: CHRONIC USE

REACTIONS (3)
  - Vasospasm [Recovered/Resolved]
  - Peripheral ischaemia [Recovered/Resolved]
  - Injection site ischaemia [Recovered/Resolved]
